FAERS Safety Report 7222248-3 (Version None)
Quarter: 2011Q1

REPORT INFORMATION
  Report Type: 
  Country: None (occurrence: None)
  Receive Date: 20110112
  Receipt Date: 20110109
  Transmission Date: 20110831
  Serious: Yes (Hospitalization)
  Sender: FDA-Public Use
  Company Number: DE-MERCK-0406DEU00092

PATIENT
  Age: 74 Year
  Sex: Female

DRUGS (9)
  1. IBANDRONATE SODIUM [Concomitant]
     Route: 065
  2. ASPIRIN [Concomitant]
     Route: 048
  3. GINKGO BILOBA EXTRACT [Concomitant]
     Route: 065
  4. METHOTREXATE [Concomitant]
     Route: 048
  5. FOSAMAX [Suspect]
     Indication: OSTEOPOROSIS
     Route: 048
     Dates: start: 20020101, end: 20040501
  6. CORTISONE [Concomitant]
     Route: 065
  7. ISOSORBIDE DINITRATE [Concomitant]
     Route: 048
  8. SOTALOL HYDROCHLORIDE [Concomitant]
     Route: 048
  9. FOSAMAX [Suspect]
     Route: 048

REACTIONS (8)
  - OVERDOSE [None]
  - TINNITUS [None]
  - INAPPROPRIATE SCHEDULE OF DRUG ADMINISTRATION [None]
  - DRUG ADMINISTRATION ERROR [None]
  - DIZZINESS [None]
  - NAUSEA [None]
  - ADVERSE EVENT [None]
  - FEELING ABNORMAL [None]
